FAERS Safety Report 7889318-8 (Version None)
Quarter: 2011Q4

REPORT INFORMATION
  Report Type: 
  Country: None (occurrence: None)
  Receive Date: 20111101
  Receipt Date: 20111018
  Transmission Date: 20120403
  Serious: Yes (Other)
  Sender: FDA-Public Use
  Company Number: TPA2011A05321

PATIENT
  Age: 64 Year
  Sex: Female
  Weight: 68.0396 kg

DRUGS (3)
  1. LOTENSIN HCT [Concomitant]
  2. TIAZAC [Concomitant]
  3. ACTOS [Suspect]
     Indication: TYPE 2 DIABETES MELLITUS
     Dosage: 15 MG, 1 IN 1 D, ORAL
     Route: 048

REACTIONS (2)
  - URETERIC CANCER [None]
  - BLADDER TRANSITIONAL CELL CARCINOMA [None]
